FAERS Safety Report 7512118 (Version 5)
Quarter: 2013Q3

REPORT INFORMATION
  Report Type: Spontaneous
  Country: NL (occurrence: NL)
  Receive Date: 20100730
  Receipt Date: 20130718
  Transmission Date: 20140515
  Serious: Yes (Hospitalization)
  Sender: FDA-Public Use
  Company Number: GXKR2010NL08272

PATIENT
  Age: 81 Year
  Sex: Male

DRUGS (9)
  1. LISINOPRIL [Suspect]
     Dosage: 20 MG, QD
     Route: 048
  2. LISINOPRIL [Suspect]
     Dosage: 40 MG/DAY
     Route: 048
  3. DICLOFENAC [Suspect]
     Dosage: 1 DF, TID, PRN
     Route: 048
  4. CHLORTHALIDONE [Suspect]
     Dosage: 12.5 MG, QD
     Route: 048
  5. ACETYLSALICYLIC ACID [Suspect]
     Dosage: 100 MG, QD
  6. ATENOLOL [Concomitant]
     Dosage: 100 MG, QD
     Route: 065
  7. ATENOLOL [Concomitant]
     Dosage: 50 MG, QD
     Route: 065
  8. AMLODIPINE [Concomitant]
     Dosage: 10 MG, QD
     Route: 065
  9. OMEPRAZOLE [Concomitant]
     Dosage: 20 MG, QD

REACTIONS (12)
  - Gastroenteritis [Unknown]
  - Abdominal pain [Unknown]
  - Diarrhoea [Unknown]
  - Dehydration [Unknown]
  - Renal failure acute [Recovered/Resolved]
  - Urine output decreased [Recovered/Resolved]
  - Hyperkalaemia [Recovered/Resolved]
  - Blood creatinine increased [Recovered/Resolved]
  - Blood urea increased [Recovered/Resolved]
  - Blood pressure decreased [Unknown]
  - Heart rate decreased [Unknown]
  - Local swelling [Unknown]
